FAERS Safety Report 5727587-0 (Version None)
Quarter: 2008Q2

REPORT INFORMATION
  Report Type: 
  Country: None (occurrence: None)
  Receive Date: 20080428
  Receipt Date: 20071107
  Transmission Date: 20081010
  Serious: Yes (Other)
  Sender: FDA-Public Use
  Company Number: 160987USA

PATIENT
  Sex: Female

DRUGS (1)
  1. OXYCODONE HCL EXTENDED-RELEASE [Suspect]
     Indication: PAIN
     Dosage: (10 MG)

REACTIONS (6)
  - ANALGESIA [None]
  - DIARRHOEA [None]
  - DRUG INEFFECTIVE [None]
  - DRUG WITHDRAWAL SYNDROME [None]
  - HYPERHIDROSIS [None]
  - NAUSEA [None]
